FAERS Safety Report 4335493-1 (Version None)
Quarter: 2004Q2

REPORT INFORMATION
  Report Type: 
  Country: None (occurrence: None)
  Receive Date: 20040406
  Receipt Date: 20040325
  Transmission Date: 20050107
  Serious: Yes (Hospitalization)
  Sender: FDA-Public Use
  Company Number: 1997-BP-00979

PATIENT
  Age: 37 Year
  Sex: Male

DRUGS (4)
  1. VIRAMUNE [Suspect]
     Indication: PROPHYLAXIS AGAINST HIV INFECTION
     Dosage: 400 MG (200 MG) PO
     Route: 048
     Dates: start: 19970303
  2. STAVUDINE (STAVUDINE) [Suspect]
     Indication: PROPHYLAXIS AGAINST HIV INFECTION
     Dosage: PO
     Route: 048
     Dates: start: 19970303
  3. NORVIR [Concomitant]
  4. VIDEX [Concomitant]

REACTIONS (2)
  - MEDICATION ERROR [None]
  - RHABDOMYOLYSIS [None]
